FAERS Safety Report 6491563-3 (Version None)
Quarter: 2009Q4

REPORT INFORMATION
  Report Type: 
  Country: None (occurrence: None)
  Receive Date: 20091125
  Receipt Date: 20090309
  Transmission Date: 20100525
  Serious: Yes (Other)
  Sender: FDA-Public Use
  Company Number: 2009BH003833

PATIENT
  Age: 76 Year
  Sex: Male
  Weight: 76 kg

DRUGS (20)
  1. DIANEAL [Suspect]
     Indication: PERITONEAL DIALYSIS
     Dosage: 11.5 L ; EVERY DAY ; IP
     Route: 033
     Dates: start: 20090202
  2. ACETAMINOPHEN [Concomitant]
  3. ALPRAZOLAM [Concomitant]
  4. ASPIRIN [Concomitant]
  5. NEPHROCAPS [Concomitant]
  6. CALCITRIOL [Concomitant]
  7. CALCIUM ACETATE [Concomitant]
  8. CARVEDILOL [Concomitant]
  9. CITALOPRAM HYDROBROMIDE [Concomitant]
  10. ENALAPRIL MALEATE [Concomitant]
  11. EPOETIN ALFA [Concomitant]
  12. FEXOFENADINE HCL [Concomitant]
  13. FLUTICASONE PROPIONATE [Concomitant]
  14. INSULIN ASPART [Concomitant]
  15. INSULIN LISPRO [Concomitant]
  16. ISOSORBIDE MONONITRATE [Concomitant]
  17. LEVOTHYROXINE SODIUM [Concomitant]
  18. MUPIROCIN CALCIUM [Concomitant]
  19. OMEPRAZOLE MAGNESIUM [Concomitant]
  20. SIMVASTATIN [Concomitant]

REACTIONS (1)
  - PERITONITIS BACTERIAL [None]
